FAERS Safety Report 17590234 (Version 4)
Quarter: 2020Q2

REPORT INFORMATION
  Report Type: Spontaneous
  Country: US (occurrence: US)
  Receive Date: 20200327
  Receipt Date: 20200605
  Transmission Date: 20200713
  Serious: No
  Sender: FDA-Public Use
  Company Number: US-009507513-2003USA009868

PATIENT
  Age: 15 Year
  Sex: Female
  Weight: 66.67 kg

DRUGS (1)
  1. NEXPLANON [Suspect]
     Active Substance: ETONOGESTREL
     Indication: URTICARIA
     Dosage: 1 IMPLANT
     Route: 023
     Dates: start: 20190802

REACTIONS (3)
  - Urticaria [Recovered/Resolved]
  - Product use in unapproved indication [Unknown]
  - Asthma [Not Recovered/Not Resolved]

NARRATIVE: CASE EVENT DATE: 20190802
